FAERS Safety Report 9563684 (Version 1)
Quarter: 2013Q3

REPORT INFORMATION
  Report Type: Spontaneous
  Country: US (occurrence: None)
  Receive Date: 20130926
  Receipt Date: 20130926
  Transmission Date: 20140515
  Serious: Yes (Life-Threatening)
  Sender: FDA-Public Use
  Company Number: None

PATIENT
  Age: 76 Year
  Sex: Male
  Weight: 65.7 kg

DRUGS (2)
  1. WARFARIN [Suspect]
     Indication: ATRIAL FIBRILLATION
     Dosage: DAILY EXCEPT THU
     Route: 048
  2. WARFARIN [Suspect]
     Dosage: THURSDAYS
     Route: 048

REACTIONS (2)
  - International normalised ratio increased [None]
  - Hypophagia [None]
